FAERS Safety Report 5563634-7 (Version None)
Quarter: 2007Q4

REPORT INFORMATION
  Report Type: 
  Country: None (occurrence: None)
  Receive Date: 20071217
  Receipt Date: 20071206
  Transmission Date: 20080405
  Serious: Yes (Hospitalization)
  Sender: FDA-Public Use
  Company Number: FR-JNJFOC-20070901564

PATIENT
  Age: 74 Year
  Sex: Male

DRUGS (14)
  1. OFLOCET [Suspect]
     Route: 048
  2. OFLOCET [Suspect]
     Indication: DRUG USE FOR UNKNOWN INDICATION
     Route: 048
  3. LOVENOX [Suspect]
     Indication: DRUG USE FOR UNKNOWN INDICATION
     Route: 058
     Dates: start: 20070714, end: 20070731
  4. RIFAMPICIN [Suspect]
     Indication: DRUG USE FOR UNKNOWN INDICATION
     Route: 048
     Dates: start: 20070727, end: 20070730
  5. ORBENINE [Concomitant]
     Route: 042
  6. ORBENINE [Concomitant]
     Route: 042
  7. DOXAZOSIN MESYLATE [Concomitant]
     Route: 065
  8. AERIUS [Concomitant]
     Route: 065
  9. ROCEPHIN [Concomitant]
     Route: 065
  10. ACUPAN [Concomitant]
     Route: 065
  11. LEXOMIL [Concomitant]
     Route: 065
  12. TRAMADOL HCL [Concomitant]
     Route: 065
  13. FORLAX [Concomitant]
     Route: 048
  14. LOCAPRED [Concomitant]
     Route: 061

REACTIONS (2)
  - PYREXIA [None]
  - RASH MACULO-PAPULAR [None]
